FAERS Safety Report 22103845 (Version 1)
Quarter: 2023Q1

REPORT INFORMATION
  Report Type: Spontaneous
  Country: US (occurrence: US)
  Receive Date: 20230316
  Receipt Date: 20230316
  Transmission Date: 20230418
  Serious: No
  Sender: FDA-Public Use
  Company Number: US-MYLANLABS-2023M1026629

PATIENT
  Sex: Female

DRUGS (1)
  1. SOTRADECOL [Suspect]
     Active Substance: SODIUM TETRADECYL SULFATE
     Indication: Product used for unknown indication
     Dosage: (SOTRADECOL INJECTION 1 AND 3 PERCENT)
     Route: 065

REACTIONS (2)
  - Rash [Unknown]
  - Granuloma annulare [Unknown]
